FAERS Safety Report 8878760 (Version 2)
Quarter: 2018Q2

REPORT INFORMATION
  Report Type: Report from Study
  Country: ZA (occurrence: ZA)
  Receive Date: 20121026
  Receipt Date: 20180612
  Transmission Date: 20180711
  Serious: Yes (Death, Hospitalization)
  Sender: FDA-Public Use
  Company Number: ZA-ROCHE-1147817

PATIENT
  Age: 25 Year
  Sex: Male

DRUGS (1)
  1. MIRCERA [Suspect]
     Active Substance: METHOXY POLYETHYLENE GLYCOL-EPOETIN BETA
     Indication: NEPHROGENIC ANAEMIA
     Route: 058
     Dates: start: 2009

REACTIONS (3)
  - Pulmonary oedema [Fatal]
  - Fluid overload [Fatal]
  - Epilepsy [Fatal]

NARRATIVE: CASE EVENT DATE: 20120924
